FAERS Safety Report 8372601-X (Version None)
Quarter: 2012Q2

REPORT INFORMATION
  Report Type: 
  Country: None (occurrence: None)
  Receive Date: 20120521
  Receipt Date: 20120516
  Transmission Date: 20120825
  Serious: Yes (Other)
  Sender: FDA-Public Use
  Company Number: PHFR2012GB002996

PATIENT
  Sex: Male

DRUGS (1)
  1. CLOZARIL [Suspect]
     Indication: SCHIZOPHRENIA
     Dosage: UNK UKN, UNK
     Route: 048
     Dates: start: 20040722

REACTIONS (4)
  - DIZZINESS [None]
  - VERTIGO [None]
  - LYMPHADENOPATHY [None]
  - GASTROOESOPHAGEAL REFLUX DISEASE [None]
